FAERS Safety Report 5523087-1 (Version None)
Quarter: 2007Q4

REPORT INFORMATION
  Report Type: 
  Country: None (occurrence: None)
  Receive Date: 20071121
  Receipt Date: 20071109
  Transmission Date: 20080405
  Serious: Yes (Other)
  Sender: FDA-Public Use
  Company Number: HQWYE801807APR05

PATIENT
  Sex: Female

DRUGS (2)
  1. PREMARIN [Suspect]
     Dosage: NOT SPECIFIED
     Route: 048
     Dates: end: 19970101
  2. PROVERA [Suspect]
     Dosage: NOT SPECIFIED
     Route: 048
     Dates: end: 19970101

REACTIONS (1)
  - BREAST CANCER METASTATIC [None]
